FAERS Safety Report 13179134 (Version 1)
Quarter: 2017Q1

REPORT INFORMATION
  Report Type: Spontaneous
  Country: FR (occurrence: FR)
  Receive Date: 20170202
  Receipt Date: 20170202
  Transmission Date: 20170428
  Serious: Yes (Hospitalization, Other)
  Sender: FDA-Public Use
  Company Number: FR-009507513-1701FRA013184

PATIENT
  Age: 69 Year
  Sex: Male

DRUGS (9)
  1. KEYTRUDA [Suspect]
     Active Substance: PEMBROLIZUMAB
     Dosage: 150 MG, Q3W, INFUSION OF 2 RNG/KG (1 SESSION/3 WEEKS), POWDER FOR SOLUTION TO DILUTE FOR INFUSION
     Route: 042
     Dates: start: 20160929, end: 20160929
  2. UVEDOSE [Concomitant]
     Active Substance: CHOLECALCIFEROL
  3. COKENZEN [Concomitant]
     Active Substance: CANDESARTAN CILEXETIL\HYDROCHLOROTHIAZIDE
  4. KEYTRUDA [Suspect]
     Active Substance: PEMBROLIZUMAB
     Indication: METASTATIC MALIGNANT MELANOMA
     Dosage: 150 MG, Q3W, INFUSION OF 2 RNG/KG (1 SESSION/3 WEEKS), POWDER FOR SOLUTION TO DILUTE FOR INFUSION
     Route: 042
     Dates: start: 20160622
  5. KEYTRUDA [Suspect]
     Active Substance: PEMBROLIZUMAB
     Dosage: 150 MG, Q3W, INFUSION OF 2 RNG/KG (1 SESSION/3 WEEKS), POWDER FOR SOLUTION TO DILUTE FOR INFUSION
     Route: 042
     Dates: start: 20160908
  6. KEYTRUDA [Suspect]
     Active Substance: PEMBROLIZUMAB
     Dosage: 150 MG, Q3W, INFUSION OF 2 RNG/KG (1 SESSION/3 WEEKS), POWDER FOR SOLUTION TO DILUTE FOR INFUSION
     Route: 042
     Dates: start: 20160803
  7. INEXIUM (ESOMEPRAZOLE MAGNESIUM) [Concomitant]
     Active Substance: ESOMEPRAZOLE MAGNESIUM
  8. CRESTOR [Concomitant]
     Active Substance: ROSUVASTATIN CALCIUM
  9. ELIQUIS [Concomitant]
     Active Substance: APIXABAN

REACTIONS (3)
  - Pericardial effusion [Recovering/Resolving]
  - Ejection fraction decreased [Recovering/Resolving]
  - Autoimmune myocarditis [Recovering/Resolving]

NARRATIVE: CASE EVENT DATE: 2016
